FAERS Safety Report 21181770 (Version 1)
Quarter: 2022Q3

REPORT INFORMATION
  Report Type: Spontaneous
  Country: US (occurrence: US)
  Receive Date: 20220806
  Receipt Date: 20220806
  Transmission Date: 20221026
  Serious: No
  Sender: FDA-Public Use
  Company Number: US-SA-SAC20220805000158

PATIENT
  Sex: Female
  Weight: 59 kg

DRUGS (1)
  1. DUPIXENT [Suspect]
     Active Substance: DUPILUMAB
     Indication: Illness
     Dosage: UNK, QOW
     Route: 058

REACTIONS (3)
  - Disease progression [Unknown]
  - Intentional dose omission [Unknown]
  - Product use in unapproved indication [Unknown]
